FAERS Safety Report 6740652-4 (Version None)
Quarter: 2010Q2

REPORT INFORMATION
  Report Type: 
  Country: None (occurrence: None)
  Receive Date: 20100520
  Receipt Date: 20090814
  Transmission Date: 20101027
  Serious: Yes (Other)
  Sender: FDA-Public Use
  Company Number: 2009234472

PATIENT
  Sex: Female

DRUGS (1)
  1. DEPO-PROVERA [Suspect]
     Indication: CONTRACEPTION
     Dosage: 150 MG, INTRAMUSCULAR
     Route: 030
     Dates: start: 20090320

REACTIONS (2)
  - GRAND MAL CONVULSION [None]
  - INCORRECT DOSE ADMINISTERED [None]
